FAERS Safety Report 9922160 (Version 1)
Quarter: 2014Q1

REPORT INFORMATION
  Report Type: Spontaneous
  Country: FR (occurrence: FR)
  Receive Date: 20140225
  Receipt Date: 20140225
  Transmission Date: 20141002
  Serious: Yes (Life-Threatening)
  Sender: FDA-Public Use
  Company Number: FR-SA-2014SA022691

PATIENT
  Age: 65 Year
  Sex: Male

DRUGS (7)
  1. ELOXATINE [Suspect]
     Indication: RECTAL ADENOCARCINOMA
     Route: 041
     Dates: start: 20130716
  2. ELVORINE [Suspect]
     Indication: RECTAL ADENOCARCINOMA
     Dosage: 175 MG/ 17.5 ML INJSOL
     Route: 041
     Dates: start: 20130716
  3. FLUOROURACIL [Suspect]
     Indication: RECTAL ADENOCARCINOMA
     Route: 040
     Dates: start: 20130716
  4. FLUOROURACIL [Suspect]
     Indication: RECTAL ADENOCARCINOMA
     Route: 041
     Dates: start: 20130716
  5. AVODART [Concomitant]
  6. METFORMIN [Concomitant]
  7. OLMETEC [Concomitant]

REACTIONS (5)
  - Renal failure acute [Recovered/Resolved]
  - Asthenia [Recovered/Resolved]
  - Blood creatinine increased [Recovered/Resolved]
  - Blood urea increased [Recovered/Resolved]
  - Hyperkalaemia [Recovered/Resolved]
